FAERS Safety Report 18228460 (Version 1)
Quarter: 2020Q3

REPORT INFORMATION
  Report Type: Spontaneous
  Country: US (occurrence: US)
  Receive Date: 20200903
  Receipt Date: 20200903
  Transmission Date: 20201103
  Serious: No
  Sender: FDA-Public Use
  Company Number: US-MYLANLABS-2020M1073078

PATIENT
  Age: 69 Year
  Sex: Female
  Weight: 129.27 kg

DRUGS (1)
  1. WIXELA INHUB [Suspect]
     Active Substance: FLUTICASONE PROPIONATE\SALMETEROL XINAFOATE
     Indication: CHRONIC OBSTRUCTIVE PULMONARY DISEASE
     Dosage: 500/50 MCG, BID (ONE PUFF TWICE A DAY)
     Route: 055

REACTIONS (4)
  - Dysphonia [Not Recovered/Not Resolved]
  - Device issue [Not Recovered/Not Resolved]
  - Ageusia [Unknown]
  - Dyspnoea [Not Recovered/Not Resolved]

NARRATIVE: CASE EVENT DATE: 202008
